FAERS Safety Report 12851888 (Version 1)
Quarter: 2016Q4

REPORT INFORMATION
  Report Type: Spontaneous
  Country: US (occurrence: US)
  Receive Date: 20161014
  Receipt Date: 20161014
  Transmission Date: 20170207
  Serious: Yes (Hospitalization)
  Sender: FDA-Public Use
  Company Number: None

PATIENT
  Age: 64 Year
  Sex: Female

DRUGS (9)
  1. PREDNISONE. [Concomitant]
     Active Substance: PREDNISONE
  2. METHOCARBAM [Concomitant]
  3. ECONAZOLE [Concomitant]
     Active Substance: ECONAZOLE
  4. ENOXAPARIN [Concomitant]
     Active Substance: ENOXAPARIN
  5. ANASTROZOLE. [Concomitant]
     Active Substance: ANASTROZOLE
  6. ORENCIA [Suspect]
     Active Substance: ABATACEPT
     Indication: RHEUMATOID ARTHRITIS
     Route: 058
     Dates: start: 20160121
  7. METHOTREXATE. [Concomitant]
     Active Substance: METHOTREXATE
  8. TRAMADOL HCL [Concomitant]
     Active Substance: TRAMADOL HYDROCHLORIDE
  9. CLOTRIMBETA [Concomitant]

REACTIONS (3)
  - Drug dose omission [None]
  - Pain in extremity [None]
  - Arthralgia [None]

NARRATIVE: CASE EVENT DATE: 201610
